FAERS Safety Report 12467254 (Version 2)
Quarter: 2016Q3

REPORT INFORMATION
  Report Type: Report from Study
  Country: IT (occurrence: JP)
  Receive Date: 20160615
  Receipt Date: 20160712
  Transmission Date: 20161109
  Serious: Yes (Hospitalization, Disabling)
  Sender: FDA-Public Use
  Company Number: IT-SIGMA-TAU US-2016STPI000434

PATIENT
  Age: 52 Year
  Sex: Male

DRUGS (15)
  1. FUROSEMIDE. [Concomitant]
     Active Substance: FUROSEMIDE
  2. FLIVAS [Concomitant]
     Active Substance: NAFTOPIDIL
  3. NEXIUM [Concomitant]
     Active Substance: ESOMEPRAZOLE MAGNESIUM
  4. MUCOSTA [Concomitant]
     Active Substance: REBAMIPIDE
  5. HISHIPHAGEN C [Concomitant]
  6. FESIN                              /00023550/ [Concomitant]
     Active Substance: IRON SUCROSE
  7. CARNITOR [Suspect]
     Active Substance: LEVOCARNITINE
     Indication: CARNITINE DEFICIENCY
     Dosage: 1000 MG, TIW
     Route: 010
     Dates: start: 20150529
  8. CRESTOR [Concomitant]
     Active Substance: ROSUVASTATIN CALCIUM
  9. CANDESARTAN CILEXETIL. [Concomitant]
     Active Substance: CANDESARTAN CILEXETIL
  10. NESP [Concomitant]
     Active Substance: DARBEPOETIN ALFA
  11. MAXACALCITOL [Concomitant]
     Active Substance: MAXACALCITOL
  12. ASPIRIN                            /00002701/ [Concomitant]
     Active Substance: ASPIRIN
  13. ALESION [Concomitant]
     Active Substance: EPINASTINE HYDROCHLORIDE
  14. PLAVIX [Concomitant]
     Active Substance: CLOPIDOGREL BISULFATE
  15. TENELIA [Concomitant]
     Active Substance: TENELIGLIPTIN

REACTIONS (1)
  - Cerebral infarction [Recovered/Resolved with Sequelae]

NARRATIVE: CASE EVENT DATE: 20160222
